FAERS Safety Report 7689553-8 (Version None)
Quarter: 2011Q3

REPORT INFORMATION
  Report Type: 
  Country: None (occurrence: None)
  Receive Date: 20110817
  Receipt Date: 20110808
  Transmission Date: 20111222
  Serious: Yes (Other)
  Sender: FDA-Public Use
  Company Number: US-ASTRAZENECA-2011SE47408

PATIENT
  Age: 61 Year
  Sex: Male
  Weight: 86.2 kg

DRUGS (7)
  1. CRESTOR [Suspect]
     Route: 048
  2. LISINOPRIL [Concomitant]
  3. SYNTHROID [Concomitant]
  4. ASPIRIN [Concomitant]
  5. CELEXA [Concomitant]
  6. GLUCOPHAGE [Concomitant]
  7. VITAMIN B-12 [Concomitant]

REACTIONS (15)
  - HEADACHE [None]
  - ARTHRALGIA [None]
  - DEPRESSION [None]
  - FATIGUE [None]
  - AUTOIMMUNE THYROIDITIS [None]
  - MUSCLE ATROPHY [None]
  - HAEMATOCRIT DECREASED [None]
  - WEIGHT DECREASED [None]
  - BONE PAIN [None]
  - CONFUSIONAL STATE [None]
  - HIGH DENSITY LIPOPROTEIN DECREASED [None]
  - RENAL DISORDER [None]
  - PLATELET DISORDER [None]
  - NAUSEA [None]
  - MYALGIA [None]
